FAERS Safety Report 12140445 (Version 1)
Quarter: 2016Q1

REPORT INFORMATION
  Report Type: Spontaneous
  Country: US (occurrence: None)
  Receive Date: 20160302
  Receipt Date: 20160302
  Transmission Date: 20160526
  Serious: Yes (Hospitalization, Disabling)
  Sender: FDA-Public Use
  Company Number: None

PATIENT
  Age: 49 Year
  Sex: Male

DRUGS (1)
  1. KENALOG [Suspect]
     Active Substance: TRIAMCINOLONE ACETONIDE
     Indication: PAIN
     Dosage: INJECTED INTO LEFT SACROILIAC JOINT
     Dates: start: 20091120, end: 20091218

REACTIONS (4)
  - Hyperlipidaemia [None]
  - Erectile dysfunction [None]
  - Neuropathy peripheral [None]
  - Hypogonadism [None]

NARRATIVE: CASE EVENT DATE: 20091218
